FAERS Safety Report 19717604 (Version 1)
Quarter: 2021Q3

REPORT INFORMATION
  Report Type: Spontaneous
  Country: SA (occurrence: SA)
  Receive Date: 20210819
  Receipt Date: 20210819
  Transmission Date: 20211014
  Serious: Yes (Other)
  Sender: FDA-Public Use
  Company Number: SA-LUPIN PHARMACEUTICALS INC.-2021-15130

PATIENT
  Age: 25 Year
  Sex: Female

DRUGS (4)
  1. TRIAMCINOLONE ACETONIDE. [Suspect]
     Active Substance: TRIAMCINOLONE ACETONIDE
     Indication: RETINITIS PIGMENTOSA
     Dosage: UNK (2 INTRAVITREAL INJECTION OF TRIAMCINOLONE)
  2. TRIAMCINOLONE ACETONIDE. [Suspect]
     Active Substance: TRIAMCINOLONE ACETONIDE
     Indication: CYSTOID MACULAR OEDEMA
  3. OZURDEX [Suspect]
     Active Substance: DEXAMETHASONE
     Indication: RETINITIS PIGMENTOSA
     Dosage: UNK (1 INJECTION OF DEXAMETHASONE IMPLANT)
  4. OZURDEX [Suspect]
     Active Substance: DEXAMETHASONE
     Indication: RETINAL DETACHMENT

REACTIONS (2)
  - Drug ineffective for unapproved indication [Unknown]
  - Off label use [Unknown]
